FAERS Safety Report 23689301 (Version 1)
Quarter: 2024Q1

REPORT INFORMATION
  Report Type: Report from Study
  Country: US (occurrence: US)
  Receive Date: 20240330
  Receipt Date: 20240330
  Transmission Date: 20240410
  Serious: Yes (Other)
  Sender: FDA-Public Use
  Company Number: US-GILEAD-2024-0665536

PATIENT
  Sex: Female

DRUGS (3)
  1. AMBRISENTAN [Suspect]
     Active Substance: AMBRISENTAN
     Indication: Product used for unknown indication
     Dosage: 10 MG
     Route: 065
     Dates: start: 20220216
  2. AMBRISENTAN [Suspect]
     Active Substance: AMBRISENTAN
     Dosage: UNK
     Route: 065
     Dates: start: 20221212
  3. AMBRISENTAN [Suspect]
     Active Substance: AMBRISENTAN
     Dosage: TAKE 1 TABLET BY MOUTH ONCE DAILY
     Route: 048
     Dates: start: 20221222

REACTIONS (8)
  - Blindness [Unknown]
  - Cataract [Unknown]
  - Memory impairment [Unknown]
  - Bedridden [Unknown]
  - Nervousness [Unknown]
  - Joint swelling [Unknown]
  - Grip strength decreased [Unknown]
  - Fear [Unknown]
